FAERS Safety Report 24808092 (Version 2)
Quarter: 2025Q1

REPORT INFORMATION
  Report Type: Spontaneous
  Country: ES (occurrence: ES)
  Receive Date: 20250106
  Receipt Date: 20250120
  Transmission Date: 20250408
  Serious: Yes (Other)
  Sender: TEVA
  Company Number: ES-TEVA-VS-3282670

PATIENT
  Age: 80 Year
  Sex: Female

DRUGS (1)
  1. VALACYCLOVIR HYDROCHLORIDE [Suspect]
     Active Substance: VALACYCLOVIR HYDROCHLORIDE
     Indication: Varicella zoster virus infection
     Dosage: THE WOMAN RECEIVED 5 PILLS OF VALACICLOVIR IN TOTAL
     Route: 065

REACTIONS (1)
  - Neurotoxicity [Recovered/Resolved]
